FAERS Safety Report 6367243-1 (Version None)
Quarter: 2009Q3

REPORT INFORMATION
  Report Type: 
  Country: None (occurrence: None)
  Receive Date: 20090921
  Receipt Date: 20090916
  Transmission Date: 20100115
  Serious: Yes (Other)
  Sender: FDA-Public Use
  Company Number: US-ALLERGAN-0912962US

PATIENT
  Age: 74 Year
  Sex: Female

DRUGS (6)
  1. BOTOX [Suspect]
     Indication: TORTICOLLIS
     Dosage: ALMOST 400 UNITS
     Route: 030
     Dates: start: 20090801, end: 20090801
  2. BOTOX [Suspect]
     Dosage: 300 UNITS, UNK
     Route: 030
  3. BOTOX [Suspect]
     Dosage: EVERY 3 MONTHS
  4. ATENOLOL [Concomitant]
     Indication: PALPITATIONS
  5. SIMVASTATIN [Concomitant]
     Indication: BLOOD CHOLESTEROL INCREASED
  6. HYDROCHLOROTHIAZIDE [Concomitant]
     Indication: POLYURIA

REACTIONS (1)
  - MUSCULAR WEAKNESS [None]
